FAERS Safety Report 19879446 (Version 1)
Quarter: 2021Q3

REPORT INFORMATION
  Report Type: Spontaneous
  Country: US (occurrence: US)
  Receive Date: 20210924
  Receipt Date: 20210924
  Transmission Date: 20211014
  Serious: No
  Sender: FDA-Public Use
  Company Number: US-VERTEX PHARMACEUTICALS-2020-018685

PATIENT
  Sex: Male

DRUGS (4)
  1. PHYTONADIONE. [Concomitant]
     Active Substance: PHYTONADIONE
  2. ZINC. [Concomitant]
     Active Substance: ZINC
  3. URSODIOL. [Concomitant]
     Active Substance: URSODIOL
  4. TRIKAFTA [Suspect]
     Active Substance: ELEXACAFTOR\IVACAFTOR\TEZACAFTOR
     Indication: CYSTIC FIBROSIS
     Dosage: FREQUENCY UNKNOWN
     Route: 048
     Dates: start: 20191205

REACTIONS (4)
  - Eye infection viral [Not Recovered/Not Resolved]
  - Oral herpes [Not Recovered/Not Resolved]
  - Hordeolum [Recovering/Resolving]
  - Dry eye [Unknown]

NARRATIVE: CASE EVENT DATE: 2020
